FAERS Safety Report 4751093-3 (Version None)
Quarter: 2005Q3

REPORT INFORMATION
  Report Type: 
  Country: None (occurrence: None)
  Receive Date: 20050824
  Receipt Date: 20050819
  Transmission Date: 20060218
  Serious: Yes (Hospitalization)
  Sender: FDA-Public Use
  Company Number: PHBS2005FI12097

PATIENT
  Sex: Male

DRUGS (2)
  1. LEPONEX [Suspect]
     Route: 048
  2. ZOLOFT [Suspect]
     Route: 065

REACTIONS (4)
  - DRUG INTERACTION [None]
  - FATIGUE [None]
  - HEPATOCELLULAR DAMAGE [None]
  - JAUNDICE [None]
